FAERS Safety Report 13287668 (Version 1)
Quarter: 2017Q1

REPORT INFORMATION
  Report Type: Spontaneous
  Country: ES (occurrence: ES)
  Receive Date: 20170302
  Receipt Date: 20170302
  Transmission Date: 20170428
  Serious: Yes (Hospitalization, Other)
  Sender: FDA-Public Use
  Company Number: ES-APOTEX-2017AP007441

PATIENT
  Age: 54 Year
  Sex: Female

DRUGS (14)
  1. MIRTAZAPINA APOTEX COMPRIMIDOS BUCODISPERSABLES [Suspect]
     Active Substance: MIRTAZAPINE
     Indication: OBSESSIVE-COMPULSIVE DISORDER
     Dosage: UNK
     Route: 065
     Dates: start: 201504
  2. CLONAZEPAM. [Suspect]
     Active Substance: CLONAZEPAM
     Indication: OBSESSIVE-COMPULSIVE DISORDER
     Dosage: UNK
     Route: 065
     Dates: start: 201504
  3. CLONAZEPAM. [Suspect]
     Active Substance: CLONAZEPAM
     Indication: DEPRESSION
  4. ARIPIPRAZOL APOTEX AG COMPRIMIDOS EFG [Interacting]
     Active Substance: ARIPIPRAZOLE
     Indication: OBSESSIVE-COMPULSIVE DISORDER
     Dosage: 5 MG, QD
     Route: 065
     Dates: start: 201504
  5. LEVOTHYROXINE. [Suspect]
     Active Substance: LEVOTHYROXINE
     Indication: OBSESSIVE-COMPULSIVE DISORDER
     Dosage: UNK
     Route: 065
     Dates: start: 201504
  6. LEVOTHYROXINE. [Suspect]
     Active Substance: LEVOTHYROXINE
     Indication: DEPRESSION
  7. RISPERIDONE. [Suspect]
     Active Substance: RISPERIDONE
     Indication: DEPRESSION
  8. FLUOXETINE [Suspect]
     Active Substance: FLUOXETINE HYDROCHLORIDE
     Indication: OBSESSIVE-COMPULSIVE DISORDER
     Dosage: UNK
     Route: 065
     Dates: start: 201504
  9. RISPERIDONE. [Suspect]
     Active Substance: RISPERIDONE
     Indication: OBSESSIVE-COMPULSIVE DISORDER
     Dosage: UNK
     Route: 065
     Dates: start: 201504
  10. MIRTAZAPINA APOTEX COMPRIMIDOS BUCODISPERSABLES [Suspect]
     Active Substance: MIRTAZAPINE
     Indication: DEPRESSION
  11. FLUOXETINE [Interacting]
     Active Substance: FLUOXETINE HYDROCHLORIDE
     Indication: DEPRESSION
  12. ENALAPRIL APOTEX COMPRIMIDOS EFG [Suspect]
     Active Substance: ENALAPRIL
     Indication: DEPRESSION
  13. ARIPIPRAZOL APOTEX AG COMPRIMIDOS EFG [Interacting]
     Active Substance: ARIPIPRAZOLE
     Indication: DEPRESSION
  14. ENALAPRIL APOTEX COMPRIMIDOS EFG [Suspect]
     Active Substance: ENALAPRIL
     Indication: OBSESSIVE-COMPULSIVE DISORDER
     Dosage: UNK
     Route: 065
     Dates: start: 201504

REACTIONS (4)
  - Drug interaction [Unknown]
  - Pneumonia [Unknown]
  - Aspiration [None]
  - Dysphagia [Recovered/Resolved]

NARRATIVE: CASE EVENT DATE: 201506
